FAERS Safety Report 14009513 (Version 1)
Quarter: 2017Q3

REPORT INFORMATION
  Report Type: Spontaneous
  Country: LB (occurrence: LB)
  Receive Date: 20170925
  Receipt Date: 20170925
  Transmission Date: 20171128
  Serious: Yes (Hospitalization, Other)
  Sender: FDA-Public Use
  Company Number: LB-MYLANLABS-2017M1059584

PATIENT
  Age: 35 Year
  Sex: Female

DRUGS (3)
  1. EPINEPHRINE. [Suspect]
     Active Substance: EPINEPHRINE
     Dosage: 0.2 MG (1 MG OF EPINEPHRINE DILUTED IN 60ML OF SODIUM CHLORIDE)
     Route: 050
  2. EPINEPHRINE. [Suspect]
     Active Substance: EPINEPHRINE
     Indication: MYOMECTOMY
     Dosage: 0.1MG (1 MG OF EPINEPHRINE DILUTED IN 60ML OF SODIUM CHLORIDE)
     Route: 050
  3. SODIUM CHLORIDE. [Concomitant]
     Active Substance: SODIUM CHLORIDE
     Indication: MYOMECTOMY
     Route: 050

REACTIONS (3)
  - Tachycardia [Recovered/Resolved]
  - Stress cardiomyopathy [Recovering/Resolving]
  - Hypertension [Recovered/Resolved]
